FAERS Safety Report 8772885 (Version 2)
Quarter: 2012Q4

REPORT INFORMATION
  Report Type: 
  Country: FR (occurrence: FR)
  Receive Date: 20120907
  Receipt Date: 20120907
  Transmission Date: 20130627
  Serious: Yes (Other)
  Sender: FDA-Public Use
  Company Number: PHHY2012FR049345

PATIENT
  Age: 20 Year
  Sex: Female
  Weight: 62 kg

DRUGS (4)
  1. NEORAL [Suspect]
     Indication: DERMATITIS ATOPIC
     Dosage: 150 mg, BID(morning and evening)
     Route: 048
     Dates: start: 20120601
  2. NEORAL [Suspect]
     Dosage: 120 mg, BID
     Route: 048
  3. ZELITREX [Concomitant]
     Dosage: 2 DF, per day
     Dates: start: 20120601
  4. CORTICOSTEROIDS [Concomitant]

REACTIONS (6)
  - Stress [Unknown]
  - Pruritus [Unknown]
  - Hypertension [Recovered/Resolved]
  - Paraesthesia [Recovered/Resolved]
  - Burning sensation [Recovered/Resolved]
  - Headache [Recovered/Resolved]
